FAERS Safety Report 17565281 (Version 3)
Quarter: 2020Q2

REPORT INFORMATION
  Report Type: Report from Study
  Country: US (occurrence: US)
  Receive Date: 20200320
  Receipt Date: 20200406
  Transmission Date: 20200713
  Serious: Yes (Other)
  Sender: FDA-Public Use
  Company Number: NVSC2020US074592

PATIENT
  Sex: Female

DRUGS (2)
  1. PIQRAY [Suspect]
     Active Substance: ALPELISIB
     Indication: PRODUCT USED FOR UNKNOWN INDICATION
     Dosage: UNK
     Route: 048
  2. PIQRAY [Suspect]
     Active Substance: ALPELISIB
     Route: 048

REACTIONS (14)
  - Wound secretion [Unknown]
  - Oral mucosal blistering [Unknown]
  - Stomatitis [Unknown]
  - Lip blister [Unknown]
  - Heart rate increased [Unknown]
  - Throat lesion [Unknown]
  - Lip haemorrhage [Unknown]
  - Oropharyngeal pain [Unknown]
  - Hypertension [Unknown]
  - Chest wall tumour [Unknown]
  - Chest injury [Unknown]
  - Blood pressure abnormal [Unknown]
  - Heart rate abnormal [Unknown]
  - Weight increased [Unknown]
